FAERS Safety Report 6689895-9 (Version None)
Quarter: 2010Q2

REPORT INFORMATION
  Report Type: 
  Country: None (occurrence: None)
  Receive Date: 20100421
  Receipt Date: 20090515
  Transmission Date: 20101027
  Serious: No
  Sender: FDA-Public Use
  Company Number: US-TYCO HEALTHCARE/MALLINCKRODT-T200901058

PATIENT
  Age: 6 Year
  Sex: Male
  Weight: 19.955 kg

DRUGS (3)
  1. METHYLIN [Suspect]
     Indication: ATTENTION DEFICIT/HYPERACTIVITY DISORDER
     Dosage: 10 MG, QD
     Route: 048
     Dates: start: 20081201, end: 20090101
  2. METHYLIN [Suspect]
     Dosage: 10 MG, BID
     Route: 048
     Dates: start: 20090101, end: 20090601
  3. ALBUTEROL [Concomitant]
     Indication: ASTHMA
     Dosage: UNK

REACTIONS (2)
  - TIC [None]
  - WEIGHT DECREASED [None]
